FAERS Safety Report 23236693 (Version 1)
Quarter: 2023Q4

REPORT INFORMATION
  Report Type: Spontaneous
  Country: JP (occurrence: JP)
  Receive Date: 20231128
  Receipt Date: 20231128
  Transmission Date: 20240109
  Serious: Yes (Other)
  Sender: FDA-Public Use
  Company Number: JP-GSK-JP2023JPN161170AA

PATIENT

DRUGS (6)
  1. EPIVIR [Suspect]
     Active Substance: LAMIVUDINE
     Indication: Acquired immunodeficiency syndrome
     Dosage: UNK
  2. ZIAGEN [Suspect]
     Active Substance: ABACAVIR SULFATE
     Indication: Acquired immunodeficiency syndrome
     Dosage: UNK
  3. ATAZANAVIR SULFATE [Concomitant]
     Active Substance: ATAZANAVIR SULFATE
     Indication: Acquired immunodeficiency syndrome
     Dosage: UNK
  4. RITONAVIR [Concomitant]
     Active Substance: RITONAVIR
     Indication: Acquired immunodeficiency syndrome
     Dosage: UNK
  5. DARUNAVIR ETHANOLATE [Concomitant]
     Active Substance: DARUNAVIR ETHANOLATE
     Indication: Acquired immunodeficiency syndrome
     Dosage: UNK
  6. RALTEGRAVIR POTASSIUM [Concomitant]
     Active Substance: RALTEGRAVIR POTASSIUM
     Indication: Acquired immunodeficiency syndrome
     Dosage: UNK

REACTIONS (12)
  - Haematuria [Unknown]
  - Calculus urinary [Recovered/Resolved]
  - Renal neoplasm [Unknown]
  - Hydronephrosis [Unknown]
  - Papillary renal cell carcinoma [Unknown]
  - Transitional cell cancer of the renal pelvis and ureter [Unknown]
  - Bladder transitional cell carcinoma [Unknown]
  - HIV associated nephropathy [Unknown]
  - General physical health deterioration [Unknown]
  - Bladder transitional cell carcinoma recurrent [Unknown]
  - End stage renal disease [Unknown]
  - Nephrosclerosis [Unknown]
